FAERS Safety Report 8170167-0 (Version None)
Quarter: 2012Q1

REPORT INFORMATION
  Report Type: 
  Country: None (occurrence: None)
  Receive Date: 20120228
  Receipt Date: 20120221
  Transmission Date: 20120608
  Serious: Yes (Other)
  Sender: FDA-Public Use
  Company Number: PHEH2012US003358

PATIENT
  Sex: Female
  Weight: 93.878 kg

DRUGS (12)
  1. FLUOXETINE [Concomitant]
     Indication: DEPRESSION
     Dosage: 20 MG, QD
     Route: 048
     Dates: start: 20070427
  2. FISH OIL [Concomitant]
  3. ASPIRIN [Concomitant]
     Indication: CORONARY ARTERY DISEASE
     Dosage: 81 MG, QD
     Route: 048
     Dates: start: 20060508
  4. SIMVASTATIN [Concomitant]
     Indication: HYPERLIPIDAEMIA
     Dosage: 40 MG, QHS
     Route: 048
     Dates: start: 20090427
  5. CALTRATE +D [Concomitant]
     Dosage: 1 DF, BID
  6. TEKTURNA [Suspect]
     Dates: end: 20120119
  7. CLONIDINE HCL [Concomitant]
     Indication: HYPERTENSION
     Dosage: 0.6 MG, DAILY (MORING + EVENING)
     Route: 048
     Dates: start: 20050526
  8. HYZAAR [Concomitant]
     Indication: HYPERTENSION
     Dosage: 1 DF (100/25 MG), QD
     Route: 048
     Dates: start: 20110131, end: 20120118
  9. TEKTURNA [Suspect]
     Indication: HYPERTENSION
     Dosage: 300 MG, QD
     Route: 048
     Dates: start: 20080303, end: 20120118
  10. AVALIDE [Suspect]
     Dosage: 1 DF, (300/25) QD
     Dates: end: 20110101
  11. LOSARTAN POTASSIUM AND HYDROCHLOROTHIAZIDE [Suspect]
     Indication: HYPERTENSION
     Dosage: 1 DF (25/100 MG), QD
  12. MULTI-VITAMINS [Concomitant]
     Dosage: 1 DF, QD

REACTIONS (7)
  - VISION BLURRED [None]
  - POST-TRAUMATIC PAIN [None]
  - CLAVICLE FRACTURE [None]
  - FATIGUE [None]
  - DIZZINESS [None]
  - SYNCOPE [None]
  - ROAD TRAFFIC ACCIDENT [None]
